FAERS Safety Report 8224407-X (Version None)
Quarter: 2012Q1

REPORT INFORMATION
  Report Type: 
  Country: None (occurrence: None)
  Receive Date: 20120307
  Receipt Date: 20110331
  Transmission Date: 20120608
  Serious: No
  Sender: FDA-Public Use
  Company Number: PHHY2011US30426

PATIENT
  Age: 69 Year
  Sex: Female

DRUGS (6)
  1. LISINOPRIL (LISIONOPRIL) [Concomitant]
  2. OMEPRAZOLE [Concomitant]
  3. BENADRYL [Suspect]
     Dosage: 25 MG
  4. LEVOTHROID [Concomitant]
  5. AFINITOR [Suspect]
     Dosage: 10 MG, DAILY
     Dates: start: 20110201
  6. ZYRTEC [Concomitant]

REACTIONS (4)
  - BLOOD GLUCOSE INCREASED [None]
  - FEELING DRUNK [None]
  - PRURITUS GENERALISED [None]
  - FORMICATION [None]
